FAERS Safety Report 12286880 (Version 1)
Quarter: 2016Q2

REPORT INFORMATION
  Report Type: Spontaneous
  Country: FR (occurrence: FR)
  Receive Date: 20160420
  Receipt Date: 20160420
  Transmission Date: 20160815
  Serious: Yes (Hospitalization)
  Sender: FDA-Public Use
  Company Number: FR-ROCHE-1740958

PATIENT
  Age: 54 Year
  Sex: Male
  Weight: 90 kg

DRUGS (2)
  1. ZELBORAF [Suspect]
     Active Substance: VEMURAFENIB
     Indication: ACRAL LENTIGINOUS MELANOMA STAGE IV
     Route: 048
     Dates: start: 20160209, end: 20160316
  2. COTELLIC [Suspect]
     Active Substance: COBIMETINIB
     Indication: ACRAL LENTIGINOUS MELANOMA STAGE IV
     Route: 048
     Dates: start: 20160304, end: 20160315

REACTIONS (2)
  - Pyrexia [Recovered/Resolved]
  - Hepatitis cholestatic [Recovering/Resolving]

NARRATIVE: CASE EVENT DATE: 20160316
